FAERS Safety Report 9398319 (Version 1)
Quarter: 2013Q3

REPORT INFORMATION
  Report Type: Spontaneous
  Country: US (occurrence: US)
  Receive Date: 20130712
  Receipt Date: 20130712
  Transmission Date: 20140515
  Serious: No
  Sender: FDA-Public Use
  Company Number: US-GLAXOSMITHKLINE-A1004909A

PATIENT
  Age: 66 Year
  Sex: Female
  Weight: 86.8 kg

DRUGS (33)
  1. FLOVENT [Suspect]
     Indication: PRODUCT USED FOR UNKNOWN INDICATION
     Dosage: 2PUFF TWICE PER DAY
     Route: 055
     Dates: start: 20121129, end: 20121130
  2. DILTIAZEM HYDROCHLORIDE [Concomitant]
     Indication: HYPERTENSION
     Dosage: 120MG AT NIGHT
     Route: 048
  3. CARVEDILOL [Concomitant]
     Indication: HYPERTENSION
     Dosage: 3.125MG TWICE PER DAY
  4. LISINOPRIL [Concomitant]
     Indication: HYPERTENSION
     Dosage: 20MG IN THE MORNING
     Route: 048
  5. LEVOTHYROXINE [Concomitant]
     Indication: HYPOTHYROIDISM
     Dosage: 62.5MG IN THE MORNING
     Route: 048
  6. CLARITIN REDITABS [Concomitant]
     Indication: HYPERSENSITIVITY
     Dosage: 5MG AS REQUIRED
  7. FLONASE [Concomitant]
     Indication: HYPERSENSITIVITY
     Dosage: 2SPR TWICE PER DAY
     Route: 045
  8. ZOLPIDEM [Concomitant]
     Indication: SLEEP DISORDER
     Route: 048
  9. BUPROPION [Concomitant]
     Indication: DEPRESSION
     Dosage: 450MG IN THE MORNING
  10. CLONAZEPAM [Concomitant]
     Indication: ANXIETY
  11. NEXIUM [Concomitant]
     Indication: HIATUS HERNIA
     Dosage: 40MG AS REQUIRED
  12. MELOXICAM [Concomitant]
     Indication: MUSCLE SPASMS
     Dosage: 5MG AS REQUIRED
  13. CYCLOBENZAPRINE [Concomitant]
     Indication: MUSCLE SPASMS
     Dosage: 5MG AS REQUIRED
  14. LYRICA [Concomitant]
     Indication: PAIN
     Dosage: 50MG AT NIGHT
  15. PROAIR HFA [Concomitant]
     Indication: COUGH
     Dosage: 2PUFF AS REQUIRED
  16. FUROSEMIDE [Concomitant]
     Indication: HYPERTENSION
  17. KLOR-CON [Concomitant]
     Indication: MINERAL SUPPLEMENTATION
     Dosage: 20MEQ THREE TIMES PER DAY
  18. CLINDAMYCIN HCL [Concomitant]
  19. OXYCODONE HYDROCHLORIDE [Concomitant]
     Indication: PAIN
  20. FENTANYL [Concomitant]
     Indication: PAIN
     Dosage: 75MCG EVERY 3 DAYS
     Route: 062
  21. B12 [Concomitant]
  22. VITAMIN D [Concomitant]
  23. COQ10 [Concomitant]
  24. OMEGA 3 FISH OIL [Concomitant]
  25. RED YEAST RICE [Concomitant]
  26. ENTERIC COATED ASPIRIN [Concomitant]
  27. MULTIVITAMIN [Concomitant]
  28. CALCIUM [Concomitant]
  29. GLUCOSAMINE + CHONDROITIN [Concomitant]
  30. SENNA [Concomitant]
  31. METAMUCIL [Concomitant]
  32. TINACTIN [Concomitant]
  33. DESONIDE [Concomitant]

REACTIONS (4)
  - Dysphonia [Recovered/Resolved]
  - Nasal discomfort [Unknown]
  - Cough [Unknown]
  - Product quality issue [Unknown]
